FAERS Safety Report 19704597 (Version 2)
Quarter: 2021Q3

REPORT INFORMATION
  Report Type: Report from Study
  Country: US (occurrence: US)
  Receive Date: 20210816
  Receipt Date: 20210929
  Transmission Date: 20211014
  Serious: Yes (Hospitalization, Other)
  Sender: FDA-Public Use
  Company Number: NVSC2021US182960

PATIENT
  Sex: Male

DRUGS (1)
  1. ENTRESTO [Suspect]
     Active Substance: SACUBITRIL\VALSARTAN
     Indication: PRODUCT USED FOR UNKNOWN INDICATION
     Dosage: 50 MG, BID (24/26 MG)
     Route: 048
     Dates: start: 20210727

REACTIONS (7)
  - Cardiac failure [Not Recovered/Not Resolved]
  - Throat clearing [Unknown]
  - Cardiac dysfunction [Not Recovered/Not Resolved]
  - Blood pressure systolic increased [Unknown]
  - Blood pressure systolic decreased [Unknown]
  - Heart rate decreased [Unknown]
  - Productive cough [Unknown]
